FAERS Safety Report 8508823-4 (Version None)
Quarter: 2012Q3

REPORT INFORMATION
  Report Type: 
  Country: None (occurrence: None)
  Receive Date: 20120703
  Receipt Date: 20120618
  Transmission Date: 20120928
  Serious: Yes (Hospitalization)
  Sender: FDA-Public Use
  Company Number: 1329501

PATIENT
  Age: 83 Year
  Sex: Female

DRUGS (2)
  1. ATROPINE SULFATE [Concomitant]
  2. DOBUTAMINE HYDROCHLORIDE [Suspect]
     Indication: STRESS ECHOCARDIOGRAM
     Dosage: 40 MUG/KG/MIN, INTRAVENOUS DRIP
     Route: 041

REACTIONS (1)
  - STRESS CARDIOMYOPATHY [None]
